FAERS Safety Report 8026567 (Version 5)
Quarter: 2012Q4

REPORT INFORMATION
  Report Type: 
  Country: US (occurrence: US)
  Receive Date: 20110708
  Receipt Date: 20121120
  Transmission Date: 20130627
  Serious: Yes (Hospitalization, Other)
  Sender: FDA-Public Use
  Company Number: US-ROCHE-787481

PATIENT
  Age: 46 Year
  Sex: Female
  Weight: 50.3 kg

DRUGS (1)
  1. ACCUTANE [Suspect]
     Indication: ROSACEA
     Route: 065
     Dates: start: 20011228, end: 200207

REACTIONS (10)
  - Irritable bowel syndrome [Unknown]
  - Abdominal pain upper [Unknown]
  - Injury [Unknown]
  - Depression [Unknown]
  - Pancreatitis chronic [Unknown]
  - Pancreas divisum [Unknown]
  - Iron deficiency anaemia [Unknown]
  - Hypertension [Unknown]
  - Obesity [Unknown]
  - Headache [Unknown]
